FAERS Safety Report 16209522 (Version 1)
Quarter: 2019Q2

REPORT INFORMATION
  Report Type: Spontaneous
  Country: NL (occurrence: NL)
  Receive Date: 20190417
  Receipt Date: 20190417
  Transmission Date: 20190711
  Serious: Yes (Other)
  Sender: FDA-Public Use
  Company Number: NL-TEVA-2019-NL-1038806

PATIENT
  Age: 27 Year
  Sex: Male
  Weight: 95 kg

DRUGS (2)
  1. HALOPERIDOL TABLET, 1 MG (MILLIGRAM) [Suspect]
     Active Substance: HALOPERIDOL
     Indication: PRODUCT USED FOR UNKNOWN INDICATION
     Dosage: 4 MILLIGRAM DAILY; 1 X 4 PIECES DAILY
     Dates: start: 20150720, end: 20190215
  2. DEPAKINE CHRONO [Concomitant]
     Active Substance: VALPROATE SODIUM
     Dosage: 1300 MILLIGRAM DAILY;

REACTIONS (4)
  - Dyspnoea exertional [Recovered/Resolved]
  - Fatigue [Recovered/Resolved]
  - Seizure like phenomena [Recovered/Resolved]
  - Headache [Recovered/Resolved]

NARRATIVE: CASE EVENT DATE: 20190110
